FAERS Safety Report 6672307-9 (Version None)
Quarter: 2010Q2

REPORT INFORMATION
  Report Type: 
  Country: None (occurrence: None)
  Receive Date: 20100408
  Receipt Date: 20100324
  Transmission Date: 20101027
  Serious: No
  Sender: FDA-Public Use
  Company Number: US-JNJFOC-20100307333

PATIENT
  Sex: Female
  Weight: 60.78 kg

DRUGS (2)
  1. FENTANYL CITRATE [Suspect]
     Indication: BACK PAIN
     Route: 062
  2. FIORICET [Concomitant]
     Indication: MIGRAINE
     Dosage: 1-2 TABLETS EVERY 6 HOURS AS NEEDED
     Route: 048

REACTIONS (3)
  - APPLICATION SITE PRURITUS [None]
  - MIGRAINE [None]
  - WRONG TECHNIQUE IN DRUG USAGE PROCESS [None]
